FAERS Safety Report 5009377-X (Version None)
Quarter: 2006Q2

REPORT INFORMATION
  Report Type: 
  Country: None (occurrence: None)
  Receive Date: 20060524
  Receipt Date: 20060404
  Transmission Date: 20061013
  Serious: Yes (Hospitalization)
  Sender: FDA-Public Use
  Company Number: GBWYE533805APR06

PATIENT
  Sex: Male
  Weight: 96 kg

DRUGS (8)
  1. ENBREL [Suspect]
     Indication: RHEUMATOID ARTHRITIS
     Route: 058
     Dates: start: 20040802, end: 20050305
  2. PREDNISOLONE [Concomitant]
     Dosage: UNKNOWN
     Route: 065
  3. AMITRIPTYLINE HCL [Concomitant]
     Dosage: UNKNOWN
     Route: 065
  4. CALCIUM CARBONATE [Concomitant]
     Dosage: UNKNOWN
     Route: 065
  5. LANSOPRAZOLE [Concomitant]
     Dosage: UNKNOWN
     Route: 065
  6. PARACETAMOL [Concomitant]
     Dosage: UNKNOWN
     Route: 065
  7. TRAMADOL HCL [Concomitant]
     Dosage: UNKNOWN
     Route: 065
  8. AZATHIOPRINE [Concomitant]
     Route: 065

REACTIONS (3)
  - PERICARDIAL EFFUSION [None]
  - PLEURAL EFFUSION [None]
  - URINARY TRACT INFECTION [None]
